FAERS Safety Report 9837250 (Version 1)
Quarter: 2014Q1

REPORT INFORMATION
  Report Type: Spontaneous
  Country: FR (occurrence: US)
  Receive Date: 20140123
  Receipt Date: 20140123
  Transmission Date: 20141002
  Serious: Yes (Other)
  Sender: FDA-Public Use
  Company Number: US-PFIZER INC-2014015519

PATIENT
  Age: 30 Year
  Sex: Male

DRUGS (3)
  1. GEMCITABINE HYDROCHLORIDE [Suspect]
     Indication: HODGKIN^S DISEASE
     Dosage: 4 CYCLES
  2. DOXORUBICIN HYDROCHLORIDE [Concomitant]
     Indication: HODGKIN^S DISEASE
     Dosage: 4 CYCLES
  3. VINORELBINE [Concomitant]
     Indication: HODGKIN^S DISEASE
     Dosage: 4 CYCLES

REACTIONS (1)
  - Muscle necrosis [Recovered/Resolved]
